FAERS Safety Report 6450070-4 (Version None)
Quarter: 2009Q4

REPORT INFORMATION
  Report Type: 
  Country: None (occurrence: None)
  Receive Date: 20091123
  Receipt Date: 20091113
  Transmission Date: 20100525
  Serious: Yes (Other)
  Sender: FDA-Public Use
  Company Number: JP-JNJFOC-20091101760

PATIENT
  Age: 97 Year
  Sex: Female

DRUGS (6)
  1. RISPERDAL [Suspect]
     Indication: DRUG USE FOR UNKNOWN INDICATION
     Route: 048
  2. CALCIUM ANTAGONISTS [Concomitant]
     Route: 065
  3. ASPIRIN [Concomitant]
     Route: 065
  4. ARICEPT [Concomitant]
     Route: 048
  5. ANTIHYPERTENSIVES [Concomitant]
     Route: 065
  6. CARDIOVASCULAR AGENTS [Concomitant]
     Route: 065

REACTIONS (1)
  - ATRIOVENTRICULAR BLOCK FIRST DEGREE [None]
